FAERS Safety Report 10995665 (Version 2)
Quarter: 2015Q2

REPORT INFORMATION
  Report Type: Spontaneous
  Country: US (occurrence: US)
  Receive Date: 20150407
  Receipt Date: 20150514
  Transmission Date: 20150821
  Serious: No
  Sender: FDA-Public Use
  Company Number: US-LUNDBECK-DKLU1110413

PATIENT
  Age: 69 Year
  Sex: Female

DRUGS (3)
  1. NORTHERA [Suspect]
     Active Substance: DROXIDOPA
     Indication: PRODUCT USED FOR UNKNOWN INDICATION
     Route: 065
  2. NORTHERA [Suspect]
     Active Substance: DROXIDOPA
     Route: 065
     Dates: start: 20150401
  3. NORTHERA [Suspect]
     Active Substance: DROXIDOPA
     Route: 065
     Dates: start: 201503

REACTIONS (6)
  - Somnolence [Unknown]
  - Fatigue [Unknown]
  - Energy increased [Unknown]
  - Crying [Unknown]
  - Nervousness [Unknown]
  - Emotional distress [Unknown]

NARRATIVE: CASE EVENT DATE: 20150403
